FAERS Safety Report 23662721 (Version 1)
Quarter: 2024Q1

REPORT INFORMATION
  Report Type: Spontaneous
  Country: US (occurrence: None)
  Receive Date: 20240321
  Receipt Date: 20240321
  Transmission Date: 20240409
  Serious: No
  Sender: FDA-Public Use
  Company Number: None

PATIENT
  Age: 44 Year
  Sex: Female
  Weight: 74.25 kg

DRUGS (1)
  1. ASTEPRO [Suspect]
     Active Substance: AZELASTINE HYDROCHLORIDE
     Indication: Multiple allergies
     Dosage: OTHER QUANTITY : 1 SPRAY(S);?FREQUENCY : DAILY;?OTHER ROUTE : NASAL SPRAY;?
     Route: 050
     Dates: start: 20240321, end: 20240321

REACTIONS (7)
  - Retching [None]
  - Vomiting [None]
  - Dry throat [None]
  - Dysgeusia [None]
  - Dizziness [None]
  - Somnolence [None]
  - Malaise [None]

NARRATIVE: CASE EVENT DATE: 20240321
